FAERS Safety Report 15709479 (Version 2)
Quarter: 2018Q4

REPORT INFORMATION
  Report Type: Spontaneous
  Country: US (occurrence: US)
  Receive Date: 20181211
  Receipt Date: 20181219
  Transmission Date: 20190205
  Serious: Yes (Other)
  Sender: FDA-Public Use
  Company Number: US-PFIZER INC-2018502732

PATIENT
  Sex: Female

DRUGS (5)
  1. ASPIRIN [ACETYLSALICYLIC ACID] [Suspect]
     Active Substance: ASPIRIN
     Dosage: UNK
  2. ISOSORBIDE MONONITRATE. [Suspect]
     Active Substance: ISOSORBIDE MONONITRATE
     Dosage: UNK
  3. METOPROLOL SUCCINATE. [Suspect]
     Active Substance: METOPROLOL SUCCINATE
     Dosage: UNK
  4. CELEBREX [Suspect]
     Active Substance: CELECOXIB
     Dosage: UNK
  5. LOPRESSOR [Suspect]
     Active Substance: METOPROLOL TARTRATE
     Dosage: UNK

REACTIONS (2)
  - Multiple allergies [Unknown]
  - Metabolic encephalopathy [Unknown]
